FAERS Safety Report 16908239 (Version 3)
Quarter: 2019Q4

REPORT INFORMATION
  Report Type: Spontaneous
  Country: US (occurrence: US)
  Receive Date: 20191011
  Receipt Date: 20191209
  Transmission Date: 20200122
  Serious: No
  Sender: FDA-Public Use
  Company Number: US-PFIZER INC-2019436488

PATIENT
  Age: 75 Year
  Sex: Female
  Weight: 67.57 kg

DRUGS (6)
  1. EUCRISA [Suspect]
     Active Substance: CRISABOROLE
     Indication: DERMATITIS ATOPIC
     Dosage: UNK, 2X/DAY
     Dates: start: 2019
  2. FLUOCINONIDE. [Concomitant]
     Active Substance: FLUOCINONIDE
     Dosage: UNK
     Dates: start: 2018
  3. FLUOCINONIDE. [Concomitant]
     Active Substance: FLUOCINONIDE
     Dosage: UNK
     Dates: start: 1998
  4. TRIAMCINOLONE [Concomitant]
     Active Substance: TRIAMCINOLONE
     Dosage: UNK
     Dates: start: 2018
  5. TRIAMCINOLONE [Concomitant]
     Active Substance: TRIAMCINOLONE
     Dosage: UNK
     Dates: start: 1998
  6. EUCRISA [Suspect]
     Active Substance: CRISABOROLE
     Indication: ECZEMA

REACTIONS (1)
  - Therapeutic product effect incomplete [Not Recovered/Not Resolved]
